FAERS Safety Report 5018256-3 (Version None)
Quarter: 2006Q2

REPORT INFORMATION
  Report Type: 
  Country: None (occurrence: None)
  Receive Date: 20060530
  Receipt Date: 20060518
  Transmission Date: 20061013
  Serious: Yes (Other)
  Sender: FDA-Public Use
  Company Number: B0424902A

PATIENT
  Age: 43 Year
  Sex: Female

DRUGS (4)
  1. EPIVIR [Suspect]
     Indication: HIV INFECTION
  2. TENOFOVIR (FORMULATION UNKNOWN) (TENOFOVIR) [Suspect]
     Indication: HIV INFECTION
  3. EFAVIRENZ [Suspect]
     Indication: HIV INFECTION
  4. CO-TRIMOXAZOLE [Concomitant]

REACTIONS (5)
  - DISCOMFORT [None]
  - HILAR LYMPHADENOPATHY [None]
  - IMMUNE RECONSTITUTION SYNDROME [None]
  - LUNG NEOPLASM [None]
  - MYCOBACTERIUM AVIUM COMPLEX INFECTION [None]
